FAERS Safety Report 9893066 (Version 1)
Quarter: 2014Q1

REPORT INFORMATION
  Report Type: Spontaneous
  Country: US (occurrence: US)
  Receive Date: 20140213
  Receipt Date: 20140213
  Transmission Date: 20141002
  Serious: No
  Sender: FDA-Public Use
  Company Number: US-009507513-1402USA006264

PATIENT
  Sex: 0

DRUGS (1)
  1. DULERA [Suspect]
     Route: 055

REACTIONS (2)
  - Insomnia [Unknown]
  - Fatigue [Unknown]
